FAERS Safety Report 9115552 (Version 3)
Quarter: 2013Q2

REPORT INFORMATION
  Report Type: Spontaneous
  Country: US (occurrence: None)
  Receive Date: 20130128
  Receipt Date: 20130506
  Transmission Date: 20140414
  Serious: Yes (Hospitalization)
  Sender: FDA-Public Use
  Company Number: 2013SGN00014

PATIENT
  Age: 23 Year
  Sex: Female

DRUGS (8)
  1. BRENTUXIMAB VEDOTIN [Suspect]
     Indication: HODGKIN^S DISEASE RECURRENT
     Dosage: QCYCLE
     Route: 042
     Dates: start: 20121106, end: 20121218
  2. BRENTUXIMAB VEDOTIN [Suspect]
     Dosage: QCYCLE
     Route: 042
     Dates: start: 20121106, end: 20121218
  3. IFOSFAMIDE (IFOSFAMIDE) [Suspect]
     Indication: HODGKIN^S DISEASE RECURRENT
     Dates: start: 20121230, end: 20121230
  4. IFOSFAMIDE (IFOSFAMIDE) [Suspect]
     Dates: start: 20121230, end: 20121230
  5. CARBOPLATIN [Suspect]
     Indication: HODGKIN^S DISEASE RECURRENT
     Dates: start: 20121230, end: 20121230
  6. ETOPOSIDE [Suspect]
     Indication: HODGKIN^S DISEASE RECURRENT
     Dates: start: 20121230, end: 20121230
  7. MESNA [Suspect]
     Indication: HODGKIN^S DISEASE RECURRENT
     Dates: start: 20121230, end: 20121230
  8. FILGRASTIM [Concomitant]

REACTIONS (11)
  - Febrile neutropenia [None]
  - Nasal congestion [None]
  - Oropharyngeal pain [None]
  - Myalgia [None]
  - Headache [None]
  - Sinus tachycardia [None]
  - Dehydration [None]
  - Platelet count decreased [None]
  - Blood phosphorus decreased [None]
  - Cheilitis [None]
  - Epistaxis [None]
